FAERS Safety Report 4343563-7 (Version None)
Quarter: 2004Q2

REPORT INFORMATION
  Report Type: 
  Country: None (occurrence: None)
  Receive Date: 20040419
  Receipt Date: 20040406
  Transmission Date: 20050107
  Serious: No
  Sender: FDA-Public Use
  Company Number: 2004AP02093

PATIENT
  Age: 69 Year
  Sex: Male

DRUGS (1)
  1. CARBOCAIN [Suspect]
     Dates: start: 20030601

REACTIONS (1)
  - ANAPHYLACTIC SHOCK [None]
